FAERS Safety Report 17054148 (Version 1)
Quarter: 2019Q4

REPORT INFORMATION
  Report Type: Report from Study
  Country: GB (occurrence: GB)
  Receive Date: 20191120
  Receipt Date: 20191120
  Transmission Date: 20200122
  Serious: Yes (Hospitalization, Other)
  Sender: FDA-Public Use
  Company Number: NVSC2019GB040043

PATIENT
  Age: 54 Year
  Sex: Female

DRUGS (9)
  1. MAXIDEX [Suspect]
     Active Substance: DEXAMETHASONE
     Indication: OCULAR HYPERAEMIA
  2. PREDNISOLONE. [Suspect]
     Active Substance: PREDNISOLONE
     Dosage: 40 MG, QD
     Route: 065
  3. PREDNISOLONE. [Suspect]
     Active Substance: PREDNISOLONE
     Indication: PRODUCT USED FOR UNKNOWN INDICATION
     Dosage: 20 MG
     Route: 065
  4. FLUTICASONE. [Suspect]
     Active Substance: FLUTICASONE
     Indication: PRODUCT USED FOR UNKNOWN INDICATION
     Dosage: 400 UG, 2-3 TIMES A DAY
     Route: 065
  5. MYCOPHENOLATE [Suspect]
     Active Substance: MYCOPHENOLIC ACID
     Indication: PRODUCT USED FOR UNKNOWN INDICATION
     Dosage: 1.5 G, BID
     Route: 065
  6. MAXIDEX [Suspect]
     Active Substance: DEXAMETHASONE
     Indication: EYE IRRITATION
     Route: 065
  7. MYCOPHENOLATE [Suspect]
     Active Substance: MYCOPHENOLIC ACID
     Dosage: 1 G, BID
     Route: 065
  8. CYCLOPHOSPHAMIDE. [Suspect]
     Active Substance: CYCLOPHOSPHAMIDE
     Indication: PRODUCT USED FOR UNKNOWN INDICATION
     Dosage: 100 MG (6 CYCLES) (SAFER FOR BLADDER- URINE DIPSTICK CONFIRMED NO HAEMATURIA)
     Route: 042
  9. COTRIMOXAZOLE [Suspect]
     Active Substance: SULFAMETHOXAZOLE\TRIMETHOPRIM
     Indication: PROPHYLAXIS
     Route: 065

REACTIONS (28)
  - Anti-neutrophil cytoplasmic antibody positive vasculitis [Unknown]
  - Lacrimal disorder [Unknown]
  - Rash maculo-papular [Unknown]
  - Red blood cell sedimentation rate increased [Unknown]
  - Neutropenia [Unknown]
  - Leukopenia [Unknown]
  - Granulomatosis with polyangiitis [Unknown]
  - Conjunctivitis [Unknown]
  - Eyelid disorder [Unknown]
  - Nasal disorder [Unknown]
  - Thalamic infarction [Unknown]
  - Immunology test abnormal [Unknown]
  - Deafness [Unknown]
  - Entropion [Unknown]
  - Trichiasis [Unknown]
  - Conjunctival hyperaemia [Unknown]
  - Nasal inflammation [Unknown]
  - Transient ischaemic attack [Unknown]
  - Conjunctival ulcer [Unknown]
  - Conjunctival disorder [Unknown]
  - Nasal valve collapse [Unknown]
  - Ocular pemphigoid [Unknown]
  - Eye disorder [Unknown]
  - Sinusitis [Unknown]
  - Bone erosion [Unknown]
  - Product use in unapproved indication [Unknown]
  - Lichen planus [Unknown]
  - Immune system disorder [Unknown]
